FAERS Safety Report 8193491-4 (Version None)
Quarter: 2012Q1

REPORT INFORMATION
  Report Type: 
  Country: None (occurrence: None)
  Receive Date: 20120308
  Receipt Date: 20120229
  Transmission Date: 20120608
  Serious: Yes (Life-Threatening, Hospitalization, Disabling)
  Sender: FDA-Public Use
  Company Number: JP-FRI-1000028744

PATIENT
  Sex: Female

DRUGS (9)
  1. MEMANTINE [Suspect]
     Indication: DEMENTIA
     Dosage: 5 MG
     Route: 048
     Dates: start: 20120124, end: 20120130
  2. ARICEPT [Concomitant]
     Dosage: 5 MG
     Dates: start: 20111122, end: 20120123
  3. ARICEPT [Concomitant]
     Dosage: 10 MG
     Dates: start: 20120124
  4. MEMANTINE [Suspect]
     Dosage: 10 MG
     Route: 048
     Dates: start: 20120131, end: 20120101
  5. LOXONIN [Concomitant]
  6. OMEPRAZOLE [Concomitant]
     Dosage: 10 MG
     Route: 048
  7. MUCOSTA [Concomitant]
  8. NORVASC [Concomitant]
  9. SIMVASTATIN [Concomitant]
     Indication: HYPERLIPIDAEMIA
     Dosage: 5 MG
     Route: 048

REACTIONS (1)
  - LARGE INTESTINE PERFORATION [None]
